FAERS Safety Report 8390529-6 (Version None)
Quarter: 2012Q2

REPORT INFORMATION
  Report Type: 
  Country: None (occurrence: None)
  Receive Date: 20120529
  Receipt Date: 20120522
  Transmission Date: 20120825
  Serious: Yes (Other)
  Sender: FDA-Public Use
  Company Number: DE-PFIZER INC-2012123408

PATIENT
  Age: 47 Year
  Sex: Male

DRUGS (1)
  1. VENLAFAXINE HCL [Suspect]
     Dosage: 300 MG, 1X/DAY
     Route: 048
     Dates: start: 20110501

REACTIONS (2)
  - PANCREATITIS [None]
  - BLOOD TEST ABNORMAL [None]
